FAERS Safety Report 10039075 (Version 1)
Quarter: 2014Q1

REPORT INFORMATION
  Report Type: Spontaneous
  Country: FR (occurrence: FR)
  Receive Date: 20140326
  Receipt Date: 20140326
  Transmission Date: 20141002
  Serious: Yes (Death)
  Sender: FDA-Public Use
  Company Number: FR-TEVA-471347ISR

PATIENT
  Age: 81 Year
  Sex: Female

DRUGS (8)
  1. COTRIMOXAZOLE [Suspect]
     Indication: URINARY TRACT INFECTION
     Dosage: 2 DOSAGE FORMS DAILY;
     Route: 048
     Dates: start: 20140110, end: 20140115
  2. COUMADINE [Suspect]
     Dosage: .25 DOSAGE FORMS DAILY;
     Route: 048
     Dates: end: 20140127
  3. CORDARONE [Concomitant]
  4. INEXIUM [Concomitant]
  5. FENOFIBRATE [Concomitant]
  6. ALPRAZOLAM [Concomitant]
  7. DIFFU K [Concomitant]
  8. LANTUS [Concomitant]

REACTIONS (4)
  - Renal failure acute [Fatal]
  - Death [Fatal]
  - Cardiac failure [Fatal]
  - Haematuria [Recovered/Resolved]
